FAERS Safety Report 23778790 (Version 1)
Quarter: 2024Q2

REPORT INFORMATION
  Report Type: Spontaneous
  Country: US (occurrence: US)
  Receive Date: 20240424
  Receipt Date: 20240424
  Transmission Date: 20240716
  Serious: No
  Sender: FDA-Public Use
  Company Number: US-ABBVIE-5728753

PATIENT
  Age: 79 Year
  Sex: Female

DRUGS (2)
  1. HUMIRA [Suspect]
     Active Substance: ADALIMUMAB
     Indication: Uveitis
     Dosage: FORM STRENGTH: 40 MG
     Route: 058
  2. HUMIRA [Suspect]
     Active Substance: ADALIMUMAB
     Dosage: FORM STRENGTH: 40 MG
     Route: 058

REACTIONS (4)
  - Product administration interrupted [Unknown]
  - Osteoarthritis [Unknown]
  - Pneumonia [Unknown]
  - Device issue [Unknown]

NARRATIVE: CASE EVENT DATE: 20240330
